FAERS Safety Report 5268725-6 (Version None)
Quarter: 2007Q1

REPORT INFORMATION
  Report Type: 
  Country: None (occurrence: None)
  Receive Date: 20070313
  Receipt Date: 20070228
  Transmission Date: 20070707
  Serious: Yes (Life-Threatening, Hospitalization)
  Sender: FDA-Public Use
  Company Number: B0430470A

PATIENT
  Age: 72 Year
  Sex: Male

DRUGS (6)
  1. TRANYLCYPROMINE SULFATE [Suspect]
     Indication: DEPRESSION
     Dosage: 30 MG TWICE PER DAY
  2. VENLAFAXINE HCL [Suspect]
     Dosage: 300 MG SINGLE DOSE
  3. RISPERIDONE [Concomitant]
  4. OXAZEPAM [Concomitant]
  5. CARBASPIRIN CALCIUM [Concomitant]
  6. VITAMIN B COMPLEX CAP [Concomitant]

REACTIONS (7)
  - DEPRESSED LEVEL OF CONSCIOUSNESS [None]
  - METABOLIC ACIDOSIS [None]
  - MYOCLONIC EPILEPSY [None]
  - RESPIRATORY FAILURE [None]
  - RHABDOMYOLYSIS [None]
  - SEROTONIN SYNDROME [None]
  - WRONG DRUG ADMINISTERED [None]
